FAERS Safety Report 18050729 (Version 2)
Quarter: 2021Q2

REPORT INFORMATION
  Report Type: Spontaneous
  Country: CA (occurrence: CA)
  Receive Date: 20200721
  Receipt Date: 20210521
  Transmission Date: 20210717
  Serious: Yes (Other)
  Sender: FDA-Public Use
  Company Number: CA-PFIZER INC-2018228342

PATIENT
  Age: 66 Year
  Sex: Female

DRUGS (4)
  1. METHOTREXATE. [Concomitant]
     Active Substance: METHOTREXATE
     Indication: RHEUMATOID ARTHRITIS
     Dosage: 25 MG, WEEKLY
     Dates: start: 201304
  2. XELJANZ [Suspect]
     Active Substance: TOFACITINIB CITRATE
     Indication: RHEUMATOID ARTHRITIS
     Dosage: 5 MG, 2X/DAY
     Route: 048
     Dates: start: 20180524, end: 20210506
  3. SULFASALAZINE. [Concomitant]
     Active Substance: SULFASALAZINE
     Indication: RHEUMATOID ARTHRITIS
     Dosage: 1000 MG, 1X/DAY
     Dates: start: 201401
  4. PLAQUENIL [Concomitant]
     Active Substance: HYDROXYCHLOROQUINE SULFATE
     Indication: RHEUMATOID ARTHRITIS
     Dosage: 400 MG, 1X/DAY
     Route: 065
     Dates: start: 201303

REACTIONS (11)
  - Osteoarthritis [Recovering/Resolving]
  - Weight increased [Unknown]
  - Weight increased [Not Recovered/Not Resolved]
  - Pain in extremity [Not Recovered/Not Resolved]
  - Diarrhoea [Recovered/Resolved]
  - Nausea [Not Recovered/Not Resolved]
  - Haemolytic anaemia [Unknown]
  - Back pain [Recovering/Resolving]
  - Headache [Not Recovered/Not Resolved]
  - Product dose omission issue [Unknown]
  - Condition aggravated [Unknown]

NARRATIVE: CASE EVENT DATE: 2018
